FAERS Safety Report 18714900 (Version 2)
Quarter: 2021Q3

REPORT INFORMATION
  Report Type: Spontaneous
  Country: JP (occurrence: JP)
  Receive Date: 20210107
  Receipt Date: 20210902
  Transmission Date: 20211014
  Serious: Yes (Other)
  Sender: FDA-Public Use
  Company Number: JP-SA-2021SA003295

PATIENT
  Age: 50 Year
  Sex: Male

DRUGS (1)
  1. DUPIXENT [Suspect]
     Active Substance: DUPILUMAB
     Indication: DERMATITIS ATOPIC
     Route: 058

REACTIONS (4)
  - Adrenal insufficiency [Recovering/Resolving]
  - Cortisol decreased [Recovering/Resolving]
  - Dyspnoea exertional [Recovering/Resolving]
  - Malaise [Recovering/Resolving]
